FAERS Safety Report 9690750 (Version 1)
Quarter: 2013Q4

REPORT INFORMATION
  Report Type: Spontaneous
  Country: US (occurrence: None)
  Receive Date: 20131114
  Receipt Date: 20131114
  Transmission Date: 20140711
  Serious: Yes (Hospitalization)
  Sender: FDA-Public Use
  Company Number: None

PATIENT
  Age: 81 Year
  Sex: Male
  Weight: 75.3 kg

DRUGS (15)
  1. ERTAPENEM [Suspect]
     Indication: PLEURAL EFFUSION
     Route: 042
     Dates: start: 20130527, end: 20130617
  2. ERTAPENEM [Suspect]
     Indication: PNEUMONIA
     Route: 042
     Dates: start: 20130527, end: 20130617
  3. VANCOMYCIN [Concomitant]
  4. ENALAPRIL [Concomitant]
  5. TAMSULOSIN [Concomitant]
  6. LABETALOL [Concomitant]
  7. HYDRALAZINE [Concomitant]
  8. ENOXAPARIN [Concomitant]
  9. PANTOPRAZOLE [Concomitant]
  10. FERROUS SULFATE [Concomitant]
  11. ZINC SULFATE [Concomitant]
  12. MVI [Concomitant]
  13. ASCORBIC ACID [Concomitant]
  14. MELATONIN [Concomitant]
  15. ALBUTEROL/IPRATROPIUM NEBULIZER [Concomitant]

REACTIONS (7)
  - Tremor [None]
  - Confusional state [None]
  - Delirium [None]
  - Insomnia [None]
  - Disorientation [None]
  - Myoclonus [None]
  - Hallucination [None]
